FAERS Safety Report 4348514-7 (Version None)
Quarter: 2004Q2

REPORT INFORMATION
  Report Type: 
  Country: None (occurrence: None)
  Receive Date: 20040427
  Receipt Date: 20040416
  Transmission Date: 20050107
  Serious: Yes (Hospitalization)
  Sender: FDA-Public Use
  Company Number: US-ROCHE-364601

PATIENT
  Age: 59 Year
  Sex: Female
  Weight: 67.1 kg

DRUGS (9)
  1. CAPECITABINE [Suspect]
     Indication: COLORECTAL CANCER METASTATIC
     Dosage: TWO WEEK THERAPY, ADMINISTERED MON-FRI.
     Route: 048
     Dates: start: 20040210
  2. BEVACIZUMAB [Suspect]
     Indication: COLORECTAL CANCER METASTATIC
     Route: 042
     Dates: start: 20040210
  3. OXALIPLATIN [Suspect]
     Indication: COLORECTAL CANCER METASTATIC
     Route: 042
     Dates: start: 20040210
  4. K-DUR 10 [Concomitant]
  5. METOPROLOL [Concomitant]
  6. DECADRON [Concomitant]
  7. TYLENOL (CAPLET) [Concomitant]
  8. COLACE [Concomitant]
  9. FUROSEMIDE [Concomitant]

REACTIONS (1)
  - MENTAL STATUS CHANGES [None]
